FAERS Safety Report 7672821-3 (Version None)
Quarter: 2011Q3

REPORT INFORMATION
  Report Type: 
  Country: None (occurrence: None)
  Receive Date: 20110809
  Receipt Date: 20110801
  Transmission Date: 20111222
  Serious: Yes (Hospitalization, Other)
  Sender: FDA-Public Use
  Company Number: US-BAYER-2011-070379

PATIENT
  Age: 18 Year
  Sex: Female
  Weight: 98 kg

DRUGS (3)
  1. EXCEDRIN [ACETYLSALICYLIC ACID,CAFFEINE,PARACETAMOL,SALICYLAMIDE] [Concomitant]
     Indication: PRODUCT USED FOR UNKNOWN INDICATION
  2. DROSPIRENONE AND ETHINYL ESTRADIOL [Suspect]
     Indication: CONTRACEPTION
     Dosage: UNK
     Dates: start: 20080401, end: 20090501
  3. ADVIL LIQUI-GELS [Concomitant]
     Indication: PRODUCT USED FOR UNKNOWN INDICATION

REACTIONS (4)
  - CHOLECYSTITIS ACUTE [None]
  - PAIN [None]
  - CHOLELITHIASIS [None]
  - CHOLECYSTECTOMY [None]
